FAERS Safety Report 8557308-8 (Version None)
Quarter: 2012Q3

REPORT INFORMATION
  Report Type: 
  Country: None (occurrence: None)
  Receive Date: 20120801
  Receipt Date: 20120728
  Transmission Date: 20120928
  Serious: Yes (Other)
  Sender: FDA-Public Use
  Company Number: NO-PFIZER INC-2012183422

PATIENT
  Age: 25 Year
  Sex: Female

DRUGS (3)
  1. VARENICLINE TARTRATE [Suspect]
     Dosage: 1 TABLET IN THE MORNING AND 1 TABLET IN THE EVENING
     Route: 048
     Dates: start: 20120729
  2. VARENICLINE TARTRATE [Suspect]
     Dosage: 2 TABLETS PER DAY
     Route: 048
     Dates: start: 20120725, end: 20120727
  3. VARENICLINE TARTRATE [Suspect]
     Indication: SMOKING CESSATION THERAPY
     Dosage: 1 TABLET PER DAY
     Route: 048
     Dates: start: 20120718, end: 20120724

REACTIONS (3)
  - HAEMATEMESIS [None]
  - VOMITING [None]
  - NAUSEA [None]
